FAERS Safety Report 18692317 (Version 1)
Quarter: 2021Q1

REPORT INFORMATION
  Report Type: Spontaneous
  Country: US (occurrence: US)
  Receive Date: 20210103
  Receipt Date: 20210103
  Transmission Date: 20210419
  Serious: No
  Sender: FDA-Public Use
  Company Number: US-ASTRAZENECA-2020SF75536

PATIENT
  Sex: Male
  Weight: 95.7 kg

DRUGS (3)
  1. BYETTA [Suspect]
     Active Substance: EXENATIDE
     Indication: DIABETES MELLITUS
     Dosage: 250 MCG/2.4 ML, TWICE DAILY
     Route: 058
  2. METFORMIN ER [Concomitant]
     Active Substance: METFORMIN HYDROCHLORIDE
  3. JARDIANCE [Concomitant]
     Active Substance: EMPAGLIFLOZIN
     Indication: DIABETES MELLITUS

REACTIONS (4)
  - Device malfunction [Unknown]
  - Intentional device misuse [Unknown]
  - Blood glucose increased [Unknown]
  - Drug dose omission by device [Unknown]
